FAERS Safety Report 14245810 (Version 4)
Quarter: 2018Q3

REPORT INFORMATION
  Report Type: Report from Study
  Country: None (occurrence: US)
  Receive Date: 20171204
  Receipt Date: 20180908
  Transmission Date: 20181010
  Serious: Yes (Other)
  Sender: FDA-Public Use
  Company Number: US-ABBVIE-17K-163-2049437-00

PATIENT
  Age: 62 Year
  Sex: Female
  Weight: 81.72 kg

DRUGS (6)
  1. UNISOM SLEEPTABS [Concomitant]
     Active Substance: DOXYLAMINE SUCCINATE
     Indication: SLEEP DISORDER THERAPY
  2. HUMIRA [Suspect]
     Active Substance: ADALIMUMAB
     Route: 058
  3. ASPIRIN. [Concomitant]
     Active Substance: ASPIRIN
     Indication: ISCHAEMIC HEART DISEASE PROPHYLAXIS
  4. PLAVIX [Suspect]
     Active Substance: CLOPIDOGREL BISULFATE
     Indication: COAGULOPATHY
  5. HUMIRA [Suspect]
     Active Substance: ADALIMUMAB
     Indication: PSORIASIS
     Route: 058
     Dates: start: 2014
  6. PLAVIX [Suspect]
     Active Substance: CLOPIDOGREL BISULFATE
     Indication: PROPHYLAXIS
     Route: 065

REACTIONS (23)
  - Aortic perforation [Not Recovered/Not Resolved]
  - Psoriasis [Recovering/Resolving]
  - Back pain [Recovering/Resolving]
  - Pain in extremity [Recovered/Resolved]
  - Cardiac murmur [Not Recovered/Not Resolved]
  - Varicose vein [Unknown]
  - Peripheral circulatory failure [Unknown]
  - Arterial occlusive disease [Unknown]
  - Dyspnoea [Recovering/Resolving]
  - Peripheral circulatory failure [Unknown]
  - Mitral valve prolapse [Not Recovered/Not Resolved]
  - Pain in extremity [Not Recovered/Not Resolved]
  - Injection site pain [Recovering/Resolving]
  - Plantar fasciitis [Unknown]
  - Headache [Unknown]
  - Blood cholesterol increased [Unknown]
  - Malaise [Recovered/Resolved]
  - Pain in extremity [Not Recovered/Not Resolved]
  - Tendon disorder [Not Recovered/Not Resolved]
  - Gait disturbance [Unknown]
  - Iridoschisis [Unknown]
  - Poor peripheral circulation [Recovered/Resolved]
  - Weight decreased [Recovering/Resolving]

NARRATIVE: CASE EVENT DATE: 2015
